FAERS Safety Report 10695646 (Version 1)
Quarter: 2015Q1

REPORT INFORMATION
  Report Type: Spontaneous
  Country: IT (occurrence: None)
  Receive Date: 20150105
  Receipt Date: 20150105
  Transmission Date: 20150721
  Serious: Yes (Other)
  Sender: FDA-Public Use
  Company Number: FK201406486

PATIENT

DRUGS (4)
  1. LIPOSOMAL DOXORUBICIN HYDROCHLORIDE [Suspect]
     Active Substance: DOXORUBICIN HYDROCHLORIDE
     Indication: PLASMA CELL MYELOMA
     Dosage: 30 MG, ON DAY 1, INTRAVENOUS (NOT OTHERWISE SPECIFIED)
     Route: 042
  2. LOW MOLECULAR WEIGHT HEPARIN (DALTEPARIN SODIUM) [Concomitant]
  3. LENALIDOMIDE [Suspect]
     Active Substance: LENALIDOMIDE
     Indication: PLASMA CELL MYELOMA
     Dosage: 25 MG, ON DAY 1 THROUGH 21, ORAL
     Route: 048
  4. DEXAMETHASONE. [Suspect]
     Active Substance: DEXAMETHASONE
     Indication: PLASMA CELL MYELOMA
     Dosage: 20 MG, DAYS 1, 8, 15, 22 OF A 28 DAY CYCLE, UNKNOWN 6 CYCLES?

REACTIONS (2)
  - Toxicity to various agents [None]
  - Deep vein thrombosis [None]
